FAERS Safety Report 6686796-7 (Version None)
Quarter: 2010Q2

REPORT INFORMATION
  Report Type: 
  Country: None (occurrence: None)
  Receive Date: 20100419
  Receipt Date: 20100409
  Transmission Date: 20101027
  Serious: Yes (Hospitalization)
  Sender: FDA-Public Use
  Company Number: GXKR2010GB04036

PATIENT
  Age: 55 Year
  Sex: Female
  Weight: 66.8 kg

DRUGS (4)
  1. RISPERIDONE [Suspect]
     Indication: PSYCHOTIC DISORDER
     Dosage: 2 MG, UNK
     Route: 048
     Dates: start: 20040101
  2. CITALOPRAM HYDROBROMIDE [Concomitant]
     Dosage: 60 MG, UNK
     Route: 048
  3. RISPERIDONE [Concomitant]
     Dosage: UNK
     Route: 048
     Dates: start: 20030101
  4. SIMVASTATIN [Concomitant]
     Indication: BLOOD CHOLESTEROL INCREASED
     Dosage: 40 MG, UNK
     Route: 048
     Dates: start: 20030101

REACTIONS (1)
  - DEEP VEIN THROMBOSIS [None]
